FAERS Safety Report 5087946-9 (Version None)
Quarter: 2006Q3

REPORT INFORMATION
  Report Type: 
  Country: None (occurrence: None)
  Receive Date: 20060822
  Receipt Date: 20060822
  Transmission Date: 20061208
  Serious: Yes (Hospitalization)
  Sender: FDA-Public Use
  Company Number: None

PATIENT
  Age: 70 Year
  Sex: Male
  Weight: 85.7298 kg

DRUGS (9)
  1. TERAZOSIN HCL [Suspect]
     Indication: URINARY TRACT DISORDER
     Dosage: TK ONE CAP QHS
  2. ATENOLOL [Concomitant]
  3. HYDROCHLOROTHIAZIDE [Concomitant]
  4. ISOSORBIDE DINITRATE [Concomitant]
  5. SIMVASTATIN [Concomitant]
  6. CLOPIDOGREL [Concomitant]
  7. NITROGLYCERIN [Concomitant]
  8. OMEPRAZOLE [Concomitant]
  9. OXYBUTYNIN [Concomitant]

REACTIONS (6)
  - DEHYDRATION [None]
  - DIZZINESS [None]
  - FALL [None]
  - NAUSEA [None]
  - ORTHOSTATIC HYPOTENSION [None]
  - SYNCOPE [None]
